FAERS Safety Report 18960175 (Version 2)
Quarter: 2021Q1

REPORT INFORMATION
  Report Type: Spontaneous
  Country: US (occurrence: US)
  Receive Date: 20210302
  Receipt Date: 20210325
  Transmission Date: 20210420
  Serious: Yes (Hospitalization, Other)
  Sender: FDA-Public Use
  Company Number: US-TAKEDA-US202024529

PATIENT
  Age: 35 Year
  Sex: Female
  Weight: 49 kg

DRUGS (17)
  1. GATTEX [Suspect]
     Active Substance: TEDUGLUTIDE\WATER
     Dosage: 0.05 UNIT UNSPECIFIED, QD
     Route: 058
     Dates: start: 20190907
  2. GATTEX [Suspect]
     Active Substance: TEDUGLUTIDE\WATER
     Dosage: 2.4 MILLIGRAM, QD
     Route: 058
     Dates: start: 20171217
  3. GATTEX [Suspect]
     Active Substance: TEDUGLUTIDE\WATER
     Dosage: 2.4 MILLIGRAM, QD
     Route: 058
     Dates: start: 20171217
  4. TPN [AMINO ACIDS NOS;CARBOHYDRATES NOS;MINERALS NOS;VITAMINS NOS] [Concomitant]
     Active Substance: AMINO ACIDS\CARBOHYDRATES\MINERALS\VITAMINS
     Indication: SHORT-BOWEL SYNDROME
     Dosage: UNK UNK, QD
     Route: 065
  5. GATTEX [Suspect]
     Active Substance: TEDUGLUTIDE\WATER
     Dosage: 0.05 UNIT UNSPECIFIED, QD
     Route: 058
     Dates: start: 20190907
  6. GATTEX [Suspect]
     Active Substance: TEDUGLUTIDE\WATER
     Dosage: 2.4 MILLIGRAM, QD
     Route: 058
     Dates: start: 20171217
  7. GATTEX [Suspect]
     Active Substance: TEDUGLUTIDE\WATER
     Dosage: 2.4 MILLIGRAM, QD
     Route: 058
     Dates: start: 20171217
  8. GATTEX [Suspect]
     Active Substance: TEDUGLUTIDE\WATER
     Dosage: 0.05 UNIT UNSPECIFIED, QD
     Route: 058
     Dates: start: 20190907
  9. GATTEX [Suspect]
     Active Substance: TEDUGLUTIDE\WATER
     Dosage: 0.05 UNIT UNSPECIFIED, QD
     Route: 058
     Dates: start: 20190907
  10. GATTEX [Suspect]
     Active Substance: TEDUGLUTIDE\WATER
     Dosage: 0.240 UNIT UNSPECIFIED, QD
     Route: 058
     Dates: start: 20180208
  11. GATTEX [Suspect]
     Active Substance: TEDUGLUTIDE\WATER
     Indication: SHORT-BOWEL SYNDROME
     Dosage: 2.47 MILLIGRAM, 1X/DAY:QD
     Route: 050
  12. GATTEX [Suspect]
     Active Substance: TEDUGLUTIDE\WATER
     Dosage: 0.240 UNIT UNSPECIFIED, QD
     Route: 058
     Dates: start: 20180208
  13. GATTEX [Suspect]
     Active Substance: TEDUGLUTIDE\WATER
     Indication: SHORT-BOWEL SYNDROME
     Dosage: 2.47 MILLIGRAM, 1X/DAY:QD
     Route: 050
  14. GATTEX [Suspect]
     Active Substance: TEDUGLUTIDE\WATER
     Indication: SHORT-BOWEL SYNDROME
     Dosage: 2.47 MILLIGRAM, 1X/DAY:QD
     Route: 050
  15. GATTEX [Suspect]
     Active Substance: TEDUGLUTIDE\WATER
     Indication: SHORT-BOWEL SYNDROME
     Dosage: 2.47 MILLIGRAM, 1X/DAY:QD
     Route: 050
  16. GATTEX [Suspect]
     Active Substance: TEDUGLUTIDE\WATER
     Dosage: 0.240 UNIT UNSPECIFIED, QD
     Route: 058
     Dates: start: 20180208
  17. GATTEX [Suspect]
     Active Substance: TEDUGLUTIDE\WATER
     Dosage: 0.240 UNIT UNSPECIFIED, QD
     Route: 058
     Dates: start: 20180208

REACTIONS (1)
  - Sepsis [Unknown]

NARRATIVE: CASE EVENT DATE: 20210217
